FAERS Safety Report 8901295 (Version 1)
Quarter: 2012Q4

REPORT INFORMATION
  Report Type: 
  Country: US (occurrence: US)
  Receive Date: 20121108
  Receipt Date: 20121108
  Transmission Date: 20130627
  Serious: Yes (Hospitalization, Other)
  Sender: FDA-Public Use
  Company Number: US-TEVA-369092USA

PATIENT
  Age: 72 Year
  Sex: Male
  Weight: 101.7 kg

DRUGS (6)
  1. SIMVASTATIN [Suspect]
  2. GEODON [Suspect]
     Indication: DEPRESSION
     Dates: start: 201209
  3. ATIVAN [Suspect]
  4. LEVOTHYROXINE [Suspect]
  5. VITAMINS [Suspect]
  6. PERPHENAZINE [Suspect]
     Indication: BIPOLAR DISORDER

REACTIONS (4)
  - Dizziness [Unknown]
  - Confusional state [Unknown]
  - Fall [Unknown]
  - Depression [Not Recovered/Not Resolved]
